FAERS Safety Report 9804599 (Version 2)
Quarter: 2014Q1

REPORT INFORMATION
  Report Type: Spontaneous
  Country: US (occurrence: US)
  Receive Date: 20140108
  Receipt Date: 20140108
  Transmission Date: 20141002
  Serious: Yes (Other)
  Sender: FDA-Public Use
  Company Number: US-CELGENEUS-163-POMAL-13101353

PATIENT
  Age: 83 Year
  Sex: Male
  Weight: 68.37 kg

DRUGS (33)
  1. POMALYST [Suspect]
     Indication: PLASMA CELL MYELOMA
     Dosage: 4 MILLIGRAM
     Route: 048
     Dates: start: 201306, end: 2013
  2. POMALYST [Suspect]
     Dosage: 3 MILLIGRAM
     Route: 048
     Dates: start: 20130807
  3. REVLIMID [Suspect]
     Indication: PLASMA CELL MYELOMA
     Dosage: 5 MILLIGRAM
     Route: 048
     Dates: start: 20090212
  4. REVLIMID [Suspect]
     Dosage: 10 MILLIGRAM
     Route: 048
     Dates: start: 201101, end: 20110628
  5. DECADRON [Concomitant]
     Indication: PRODUCT USED FOR UNKNOWN INDICATION
     Route: 048
     Dates: start: 20050224
  6. DECADRON [Concomitant]
     Route: 065
     Dates: start: 20080922
  7. DECADRON [Concomitant]
     Route: 065
     Dates: start: 20090408
  8. DECADRON [Concomitant]
     Route: 065
     Dates: start: 20120625
  9. DECADRON [Concomitant]
     Route: 065
  10. VELCADE [Concomitant]
     Indication: PRODUCT USED FOR UNKNOWN INDICATION
     Route: 065
     Dates: start: 20080922, end: 20090122
  11. VELCADE [Concomitant]
     Route: 065
     Dates: end: 20100824
  12. VELCADE [Concomitant]
     Route: 065
     Dates: start: 20120625
  13. VELCADE [Concomitant]
     Route: 065
  14. MELPHALAN [Concomitant]
     Indication: PRODUCT USED FOR UNKNOWN INDICATION
     Route: 065
     Dates: start: 20110922
  15. MELPHALAN [Concomitant]
     Route: 065
     Dates: start: 20111129
  16. MELPHALAN [Concomitant]
     Dosage: 8 MILLIGRAM
     Route: 065
  17. PREDNISONE [Concomitant]
     Indication: PRODUCT USED FOR UNKNOWN INDICATION
     Route: 065
     Dates: start: 20110922
  18. PREDNISONE [Concomitant]
     Route: 065
     Dates: start: 20111129
  19. PREDNISONE [Concomitant]
     Route: 065
     Dates: start: 2012
  20. CARFILZOMIB [Concomitant]
     Indication: PRODUCT USED FOR UNKNOWN INDICATION
     Route: 065
     Dates: start: 20121022
  21. B-12 [Concomitant]
     Indication: PRODUCT USED FOR UNKNOWN INDICATION
     Route: 065
  22. CALCIUM CITRATE [Concomitant]
     Indication: PRODUCT USED FOR UNKNOWN INDICATION
     Route: 065
  23. DIOVAN [Concomitant]
     Indication: PRODUCT USED FOR UNKNOWN INDICATION
     Route: 065
  24. FINASTERIDE [Concomitant]
     Indication: PRODUCT USED FOR UNKNOWN INDICATION
     Route: 065
  25. LEVOTHYROXINE [Concomitant]
     Indication: PRODUCT USED FOR UNKNOWN INDICATION
     Route: 065
  26. MAGNESIUM [Concomitant]
     Indication: PRODUCT USED FOR UNKNOWN INDICATION
     Route: 065
  27. MUPIROCIN [Concomitant]
     Indication: PRODUCT USED FOR UNKNOWN INDICATION
     Route: 061
  28. POTASSIUM CHLORIDE [Concomitant]
     Indication: PRODUCT USED FOR UNKNOWN INDICATION
     Route: 065
  29. PROCHLORPERAZINE MALEATE [Concomitant]
     Indication: PRODUCT USED FOR UNKNOWN INDICATION
     Route: 065
  30. MEDROL [Concomitant]
     Indication: PRODUCT USED FOR UNKNOWN INDICATION
     Dosage: 20 MILLIGRAM
     Route: 065
     Dates: start: 20110202
  31. MEDROL [Concomitant]
     Route: 065
     Dates: start: 2011
  32. MEDROL [Concomitant]
     Dosage: 12 MILLIGRAM
     Route: 065
     Dates: start: 201104, end: 20110628
  33. DOXIL [Concomitant]
     Indication: PRODUCT USED FOR UNKNOWN INDICATION
     Route: 065
     Dates: start: 20080922, end: 20090122

REACTIONS (5)
  - Malignant melanoma in situ [Unknown]
  - Confusional state [Not Recovered/Not Resolved]
  - Fatigue [Unknown]
  - Neuropathy peripheral [Unknown]
  - Blood immunoglobulin M increased [Unknown]
